FAERS Safety Report 25708660 (Version 1)
Quarter: 2025Q3

REPORT INFORMATION
  Report Type: Other
  Country: EU (occurrence: EU)
  Receive Date: 20250821
  Receipt Date: 20250821
  Transmission Date: 20251021
  Serious: Yes (Hospitalization)
  Sender: Atnahs Healthcare
  Company Number: None

PATIENT
  Age: 25 Year
  Sex: Male
  Weight: 56 kg

DRUGS (12)
  1. VALIUM [Suspect]
     Active Substance: DIAZEPAM
     Indication: Wrong patient received product
     Route: 048
     Dates: start: 20250720, end: 20250720
  2. FYCOMPA [Suspect]
     Active Substance: PERAMPANEL
     Indication: Wrong patient received product
     Route: 048
     Dates: start: 20250720, end: 20250720
  3. LOXAPINE SUCCINATE [Suspect]
     Active Substance: LOXAPINE SUCCINATE
     Indication: Wrong patient received product
     Route: 048
     Dates: start: 20250720, end: 20250720
  4. MELATONIN [Suspect]
     Active Substance: MELATONIN
     Indication: Wrong patient received product
     Route: 048
     Dates: start: 20250720, end: 20250720
  5. VALPROATE SODIUM [Concomitant]
     Active Substance: VALPROATE SODIUM
     Indication: Epilepsy
     Dosage: 1/2-0-1/2
     Route: 048
  6. CLOBAZAM [Concomitant]
     Active Substance: CLOBAZAM
     Indication: Epilepsy
     Dosage: 0-0-1
     Route: 048
  7. CLOBAZAM [Concomitant]
     Active Substance: CLOBAZAM
     Indication: Epilepsy
     Dosage: 1-0-0
     Route: 048
  8. EBASTINE [Concomitant]
     Active Substance: EBASTINE
     Indication: Product used for unknown indication
     Dosage: 0-0-1
     Route: 048
  9. DIACOMIT 500 mg, g?lule [Concomitant]
     Indication: Epilepsy
     Dosage: 1-1-1
     Route: 048
  10. EPITOMAX 100 mg, comprim? pellicul? [Concomitant]
     Indication: Epilepsy
     Dosage: 1-0-0
     Route: 048
  11. EPITOMAX 25 mg, g?lule [Concomitant]
     Indication: Epilepsy
     Dosage: 0-0-1
     Route: 048
  12. TOPIRAMATE [Concomitant]
     Active Substance: TOPIRAMATE
     Indication: Epilepsy
     Dosage: 0-0-1
     Route: 048

REACTIONS (3)
  - Hypotension [Recovered/Resolved]
  - Somnolence [Recovered/Resolved]
  - Wrong patient received product [Recovered/Resolved]

NARRATIVE: CASE EVENT DATE: 20250720
